FAERS Safety Report 4372440-0 (Version None)
Quarter: 2004Q2

REPORT INFORMATION
  Report Type: 
  Country: None (occurrence: None)
  Receive Date: 20040602
  Receipt Date: 20040520
  Transmission Date: 20050107
  Serious: Yes (Hospitalization)
  Sender: FDA-Public Use
  Company Number: 2004034306

PATIENT
  Age: 18 Year
  Sex: Male

DRUGS (3)
  1. ZOLOFT [Suspect]
     Indication: ILL-DEFINED DISORDER
     Dosage: 100 MG (100 MG, 1 IN 1 D)
  2. BUDESONIDE (BUDESONIDE) [Concomitant]
  3. SALBUTAMOL (SALBUTAMOL) [Concomitant]

REACTIONS (2)
  - MENINGITIS ASEPTIC [None]
  - RESPIRATORY ARREST [None]
